FAERS Safety Report 15657288 (Version 1)
Quarter: 2018Q4

REPORT INFORMATION
  Report Type: Spontaneous
  Country: GB (occurrence: GB)
  Receive Date: 20181126
  Receipt Date: 20181126
  Transmission Date: 20190205
  Serious: Yes (Life-Threatening, Hospitalization)
  Sender: FDA-Public Use
  Company Number: GB-SAKK-2018SA171068AA

PATIENT
  Age: 26 Year
  Sex: Female

DRUGS (19)
  1. NOVORAPID [Suspect]
     Active Substance: INSULIN ASPART
     Dosage: 120 U, QD
  2. ASPIRIN [ACETYLSALICYLIC ACID] [Concomitant]
     Active Substance: ASPIRIN
     Indication: PROPHYLAXIS
     Dosage: UNK
     Dates: start: 20141218
  3. LEVEMIR [Suspect]
     Active Substance: INSULIN DETEMIR
     Dosage: 110 U, QD
     Route: 058
     Dates: start: 20150122
  4. RANITIDINE. [Concomitant]
     Active Substance: RANITIDINE
     Indication: PROPHYLAXIS
     Dosage: UNK
     Dates: start: 20150616, end: 20150618
  5. FOLIC ACID. [Concomitant]
     Active Substance: FOLIC ACID
     Indication: PROPHYLAXIS
     Dosage: UNK
     Dates: start: 201410, end: 201501
  6. NOVORAPID [Suspect]
     Active Substance: INSULIN ASPART
     Indication: TYPE 1 DIABETES MELLITUS
     Dosage: 115 DF, QD
     Dates: start: 1996
  7. CEFALEXIN [Concomitant]
     Active Substance: CEPHALEXIN
     Indication: PROPHYLAXIS
     Dosage: UNK
     Dates: start: 20150617
  8. ONDASETRON [ONDANSETRON] [Concomitant]
     Dosage: UNK
  9. LACTULOSE. [Concomitant]
     Active Substance: LACTULOSE
     Dosage: UNK
     Dates: start: 20150616, end: 20150617
  10. FLEET ENEMA [Concomitant]
     Active Substance: SODIUM PHOSPHATE, DIBASIC\SODIUM PHOSPHATE, MONOBASIC
     Dosage: UNK
     Dates: start: 20150617, end: 20150617
  11. LEVEMIR [Suspect]
     Active Substance: INSULIN DETEMIR
     Dosage: 120 DF, QD
     Route: 058
     Dates: start: 20150122
  12. ORAMORPH [Concomitant]
     Active Substance: MORPHINE SULFATE
     Indication: PROCEDURAL NAUSEA
     Dosage: UNK
     Dates: start: 20150618, end: 20150618
  13. CLEXANE [Concomitant]
     Active Substance: ENOXAPARIN SODIUM
     Indication: PROPHYLAXIS
     Dosage: UNK
     Dates: start: 20150618
  14. ASCORBIC ACID. [Concomitant]
     Active Substance: ASCORBIC ACID
     Indication: PROPHYLAXIS
     Dosage: UNK
     Dates: start: 20141219
  15. PARACETAMOL [Concomitant]
     Active Substance: ACETAMINOPHEN
     Indication: POSTOPERATIVE ANALGESIA
     Dosage: UNK
     Dates: start: 20150618
  16. METFORMIN [Concomitant]
     Active Substance: METFORMIN HYDROCHLORIDE
     Indication: TYPE 1 DIABETES MELLITUS
     Dosage: 1 G, QD
     Dates: start: 20150122
  17. LANTUS [Suspect]
     Active Substance: INSULIN GLARGINE
     Indication: TYPE 1 DIABETES MELLITUS
     Dosage: 70 U, QD
     Dates: start: 1996, end: 20150121
  18. LEVEMIR [Suspect]
     Active Substance: INSULIN DETEMIR
     Indication: TYPE 1 DIABETES MELLITUS
     Dosage: 35 DF, QD
     Route: 058
     Dates: start: 20141219
  19. BETAMETHASONE. [Concomitant]
     Active Substance: BETAMETHASONE
     Indication: PROPHYLAXIS
     Dosage: UNK
     Dates: start: 20150616, end: 20150617

REACTIONS (4)
  - Hypoglycaemia [Recovered/Resolved]
  - Exposure during pregnancy [Unknown]
  - Vomiting [Recovered/Resolved]
  - Dyspepsia [Not Recovered/Not Resolved]

NARRATIVE: CASE EVENT DATE: 20141002
